FAERS Safety Report 11506462 (Version 1)
Quarter: 2015Q3

REPORT INFORMATION
  Report Type: Spontaneous
  Country: US (occurrence: US)
  Receive Date: 20150915
  Receipt Date: 20150915
  Transmission Date: 20151125
  Serious: No
  Sender: FDA-Public Use
  Company Number: US-ROCHE-784345

PATIENT
  Sex: Female

DRUGS (2)
  1. RIBAVIRIN. [Suspect]
     Active Substance: RIBAVIRIN
     Indication: HEPATITIS C
     Dosage: DIVIDED DOSES; 48 WEEK COURSE
     Route: 065
  2. PEGASYS [Suspect]
     Active Substance: PEGINTERFERON ALFA-2A
     Indication: HEPATITIS C
     Dosage: DIVIDED DOSES; 48 WEEK COURSE
     Route: 065

REACTIONS (5)
  - Rash [Recovered/Resolved]
  - Asthenia [Unknown]
  - Haematology test abnormal [Unknown]
  - Thermal burn [Unknown]
  - Fatigue [Unknown]
